FAERS Safety Report 17404794 (Version 2)
Quarter: 2024Q1

REPORT INFORMATION
  Report Type: Spontaneous
  Country: US (occurrence: US)
  Receive Date: 20200211
  Receipt Date: 20240306
  Transmission Date: 20240409
  Serious: No
  Sender: FDA-Public Use
  Company Number: US-PURDUE-USA-2019-0148901

PATIENT
  Sex: Male

DRUGS (3)
  1. BUPRENORPHINE [Suspect]
     Active Substance: BUPRENORPHINE
     Indication: Pain
     Dosage: 10 MCG/HR, WEEKLY
     Route: 062
  2. BUPRENORPHINE [Suspect]
     Active Substance: BUPRENORPHINE
     Dosage: 15 MCG/HR, WEEKLY
     Route: 062
  3. BUPRENORPHINE [Suspect]
     Active Substance: BUPRENORPHINE
     Indication: Product used for unknown indication
     Dosage: UNK
     Route: 062

REACTIONS (2)
  - Inadequate analgesia [Unknown]
  - Dizziness [Unknown]
